FAERS Safety Report 17016175 (Version 1)
Quarter: 2019Q4

REPORT INFORMATION
  Report Type: Spontaneous
  Country: IN (occurrence: IN)
  Receive Date: 20191111
  Receipt Date: 20191111
  Transmission Date: 20200122
  Serious: Yes (Death, Hospitalization, Other)
  Sender: FDA-Public Use
  Company Number: IN-PFIZER INC-2019481228

PATIENT
  Age: 70 Year
  Sex: Female

DRUGS (1)
  1. PALBACE [Suspect]
     Active Substance: PALBOCICLIB
     Indication: BREAST CANCER METASTATIC
     Dosage: 125 MG, ONCE A DAY
     Route: 048
     Dates: start: 20190909

REACTIONS (6)
  - Pneumonia [Unknown]
  - Neoplasm progression [Unknown]
  - Vomiting [Unknown]
  - Death [Fatal]
  - Aspiration [Unknown]
  - Haematemesis [Unknown]

NARRATIVE: CASE EVENT DATE: 20191024
